FAERS Safety Report 5460773-6 (Version None)
Quarter: 2007Q3

REPORT INFORMATION
  Report Type: 
  Country: None (occurrence: None)
  Receive Date: 20070919
  Receipt Date: 20070913
  Transmission Date: 20080115
  Serious: Yes (Hospitalization)
  Sender: FDA-Public Use
  Company Number: DE-BOEHRINGER INGELHEIM PHARMACEUTICALS, INC.-2007-DE-05521DE

PATIENT
  Age: 82 Year
  Sex: Male
  Weight: 83 kg

DRUGS (6)
  1. AGGRENOX [Suspect]
     Dosage: 200MG DIPYRIDAMOL + 25 MG ASS
     Dates: start: 20070227
  2. ENALAPRIL MALEATE [Concomitant]
     Indication: HYPERTENSION
  3. NITRENDIPIN [Concomitant]
     Indication: HYPERTENSION
  4. ASPIRIN [Concomitant]
     Indication: HYDRAEMIA
  5. ANTICHOLESTEREMIC [Concomitant]
     Indication: BLOOD CHOLESTEROL INCREASED
  6. HEPARIN [Concomitant]

REACTIONS (6)
  - BRAIN STEM INFARCTION [None]
  - HEADACHE [None]
  - LACRIMATION INCREASED [None]
  - MONOPLEGIA [None]
  - PARALYSIS [None]
  - SPEECH DISORDER [None]
